FAERS Safety Report 26187887 (Version 1)
Quarter: 2025Q4

REPORT INFORMATION
  Report Type: Spontaneous
  Country: EU (occurrence: EU)
  Receive Date: 20251222
  Receipt Date: 20251222
  Transmission Date: 20260117
  Serious: Yes (Other)
  Sender: Atnahs Healthcare
  Company Number: EU-BAUSCH-BH-2025-021768

PATIENT

DRUGS (6)
  1. DIAZEPAM [Suspect]
     Active Substance: DIAZEPAM
     Indication: Status dystonicus
     Dosage: 15 MG, DAILY
     Route: 065
  2. PROPRANOLOL [Suspect]
     Active Substance: PROPRANOLOL HYDROCHLORIDE
     Indication: Status dystonicus
     Dosage: 40 MG, DAILY
     Route: 065
  3. TETRABENAZINE [Suspect]
     Active Substance: TETRABENAZINE
     Indication: Status dystonicus
     Dosage: 200 MG, DAILY
     Route: 065
  4. DIASTAT [Suspect]
     Active Substance: DIAZEPAM
     Indication: Status dystonicus
     Dosage: 15 MG, DAILY
     Route: 065
  5. CLONAZEPAM [Suspect]
     Active Substance: CLONAZEPAM
     Indication: Status dystonicus
     Dosage: 6 MG, DAILY
     Route: 065
  6. CAFFEINE [Suspect]
     Active Substance: CAFFEINE
     Indication: Status dystonicus
     Dosage: 600 MG, DAILY
     Route: 065

REACTIONS (1)
  - Therapy non-responder [Unknown]
